FAERS Safety Report 16277147 (Version 2)
Quarter: 2019Q2

REPORT INFORMATION
  Report Type: Report from Study
  Country: None (occurrence: US)
  Receive Date: 20190506
  Receipt Date: 20190621
  Transmission Date: 20190711
  Serious: Yes (Other)
  Sender: FDA-Public Use
  Company Number: US-ABBVIE-19S-163-2768282-00

PATIENT
  Sex: Female
  Weight: 45.4 kg

DRUGS (6)
  1. DEPAKOTE [Suspect]
     Active Substance: DIVALPROEX SODIUM
     Indication: FACIAL NEURALGIA
     Dosage: THREE TIMES DAILY
     Route: 048
     Dates: start: 1999
  2. DEPAKOTE [Interacting]
     Active Substance: DIVALPROEX SODIUM
     Indication: AFFECTIVE DISORDER
  3. DEPAKOTE [Interacting]
     Active Substance: DIVALPROEX SODIUM
     Indication: BIPOLAR I DISORDER
  4. FLUOXETINE [Interacting]
     Active Substance: FLUOXETINE HYDROCHLORIDE
     Indication: PRODUCT USED FOR UNKNOWN INDICATION
     Route: 065
  5. STRATTERA [Interacting]
     Active Substance: ATOMOXETINE HYDROCHLORIDE
     Indication: PRODUCT USED FOR UNKNOWN INDICATION
     Route: 065
  6. DEPAKOTE [Interacting]
     Active Substance: DIVALPROEX SODIUM
     Indication: MIGRAINE PROPHYLAXIS

REACTIONS (23)
  - Gait disturbance [Recovering/Resolving]
  - Colon cancer stage III [Unknown]
  - Off label use [Unknown]
  - Hypoglycaemia [Recovered/Resolved]
  - Cerebral disorder [Recovered/Resolved]
  - Delirium [Recovered/Resolved]
  - Dehydration [Unknown]
  - Speech disorder [Recovering/Resolving]
  - Drug interaction [Unknown]
  - Loss of consciousness [Recovered/Resolved]
  - Dysphonia [Recovering/Resolving]
  - Dyskinesia [Not Recovered/Not Resolved]
  - Tremor [Recovering/Resolving]
  - Dizziness [Recovering/Resolving]
  - Post-traumatic stress disorder [Recovering/Resolving]
  - Dysarthria [Recovering/Resolving]
  - Disorientation [Recovering/Resolving]
  - Delusional disorder, unspecified type [Recovered/Resolved]
  - Sinus headache [Recovering/Resolving]
  - Psychotic disorder [Recovered/Resolved]
  - Head injury [Unknown]
  - Fall [Not Recovered/Not Resolved]
  - Hypoglycaemia [Unknown]

NARRATIVE: CASE EVENT DATE: 2011
